FAERS Safety Report 17075949 (Version 6)
Quarter: 2023Q4

REPORT INFORMATION
  Report Type: Spontaneous
  Country: US (occurrence: US)
  Receive Date: 20191126
  Receipt Date: 20231107
  Transmission Date: 20240109
  Serious: Yes (Other)
  Sender: FDA-Public Use
  Company Number: US-GILEAD-2019-0439508

PATIENT
  Age: 49 Year
  Sex: Male
  Weight: 86.168 kg

DRUGS (54)
  1. ATRIPLA [Suspect]
     Active Substance: EFAVIRENZ\EMTRICITABINE\TENOFOVIR DISOPROXIL FUMARATE
     Indication: HIV infection
     Dosage: UNK
     Route: 048
     Dates: start: 20070131, end: 20170502
  2. ATRIPLA [Suspect]
     Active Substance: EFAVIRENZ\EMTRICITABINE\TENOFOVIR DISOPROXIL FUMARATE
     Dosage: UNK
     Route: 048
     Dates: start: 20160510, end: 20170502
  3. VIREAD [Suspect]
     Active Substance: TENOFOVIR DISOPROXIL FUMARATE
     Indication: HIV infection
     Dosage: UNK
     Route: 065
     Dates: start: 20130104, end: 20130106
  4. ODEFSEY [Concomitant]
     Active Substance: EMTRICITABINE\RILPIVIRINE HYDROCHLORIDE\TENOFOVIR ALAFENAMIDE FUMARATE
  5. TIZANIDINE [Concomitant]
     Active Substance: TIZANIDINE
  6. ALENDRONATE SODIUM [Concomitant]
     Active Substance: ALENDRONATE SODIUM
     Indication: Osteoporosis
     Dosage: UNK
     Dates: start: 20170123
  7. DIAZEPAM [Concomitant]
     Active Substance: DIAZEPAM
  8. ACYCLOVIR [Concomitant]
     Active Substance: ACYCLOVIR
  9. SPIRIVA [Concomitant]
     Active Substance: TIOTROPIUM BROMIDE MONOHYDRATE
  10. ATORVASTATIN [Concomitant]
     Active Substance: ATORVASTATIN
  11. LISINOPRIL [Concomitant]
     Active Substance: LISINOPRIL
  12. METOPROLOL TARTRATE [Concomitant]
     Active Substance: METOPROLOL TARTRATE
  13. PANTOPRAZOLE [Concomitant]
     Active Substance: PANTOPRAZOLE
  14. ALBUTEROL SULFATE [Concomitant]
     Active Substance: ALBUTEROL SULFATE
  15. PROAIR HFA [Concomitant]
     Active Substance: ALBUTEROL SULFATE
  16. CHANTIX [Concomitant]
     Active Substance: VARENICLINE TARTRATE
  17. IBUPROFEN [Concomitant]
     Active Substance: IBUPROFEN
  18. ADVAIR HFA [Concomitant]
     Active Substance: FLUTICASONE PROPIONATE\SALMETEROL XINAFOATE
  19. ISENTRESS [Concomitant]
     Active Substance: RALTEGRAVIR POTASSIUM
  20. KETOCONAZOLE [Concomitant]
     Active Substance: KETOCONAZOLE
  21. FAMOTIDINE [Concomitant]
     Active Substance: FAMOTIDINE
  22. METRONIDAZOLE [Concomitant]
     Active Substance: METRONIDAZOLE
  23. TRIAMCINOLONE [Concomitant]
     Active Substance: TRIAMCINOLONE
  24. PREDNISONE [Concomitant]
     Active Substance: PREDNISONE
  25. AZITHROMYCIN [Concomitant]
     Active Substance: AZITHROMYCIN
  26. MONTELUKAST [Concomitant]
     Active Substance: MONTELUKAST SODIUM
  27. ACETAMINOPHEN\HYDROCODONE [Concomitant]
     Active Substance: ACETAMINOPHEN\HYDROCODONE
  28. GRAMICIDIN\NEOMYCIN\POLYMYXIN [Concomitant]
     Active Substance: GRAMICIDIN\NEOMYCIN\POLYMYXIN
  29. NITROGLYCERIN [Concomitant]
     Active Substance: NITROGLYCERIN
  30. TRELEGY ELLIPTA [Concomitant]
     Active Substance: FLUTICASONE FUROATE\UMECLIDINIUM BROMIDE\VILANTEROL TRIFENATATE
  31. POTASSIUM CHLORIDE [Concomitant]
     Active Substance: POTASSIUM CHLORIDE
  32. OXYCODONE/APAP [Concomitant]
     Active Substance: ACETAMINOPHEN\OXYCODONE HYDROCHLORIDE
  33. CLOPIDOGREL [Concomitant]
     Active Substance: CLOPIDOGREL BISULFATE
  34. DOK [Concomitant]
     Active Substance: DOCUSATE SODIUM
  35. AFLURIA QUAD [Concomitant]
  36. CIPRODEX [Concomitant]
     Active Substance: CIPROFLOXACIN HYDROCHLORIDE\DEXAMETHASONE
  37. SILDENAFIL [Concomitant]
     Active Substance: SILDENAFIL
  38. AMOXICILLIN [Concomitant]
     Active Substance: AMOXICILLIN
  39. AMPICILLIN [Concomitant]
     Active Substance: AMPICILLIN
  40. ASPIRIN [Concomitant]
     Active Substance: ASPIRIN
  41. BACTRIM [Concomitant]
     Active Substance: SULFAMETHOXAZOLE\TRIMETHOPRIM
  42. CORTISONE [Concomitant]
     Active Substance: CORTISONE
  43. DEXAMETHASONE [Concomitant]
     Active Substance: DEXAMETHASONE
  44. DILANTIN [Concomitant]
     Active Substance: PHENYTOIN
  45. HEPARIN [Concomitant]
     Active Substance: HEPARIN SODIUM
  46. LASIX [Concomitant]
     Active Substance: FUROSEMIDE
  47. COMBIVIR [Concomitant]
     Active Substance: LAMIVUDINE\ZIDOVUDINE
  48. EMTRIVA [Concomitant]
     Active Substance: EMTRICITABINE
  49. SUSTIVA [Concomitant]
     Active Substance: EFAVIRENZ
  50. VICODIN [Concomitant]
     Active Substance: ACETAMINOPHEN\HYDROCODONE BITARTRATE
  51. TOBRAMYCIN [Concomitant]
     Active Substance: TOBRAMYCIN
  52. CALCIUM CARBONATE [Concomitant]
     Active Substance: CALCIUM CARBONATE
  53. VALIUM [Concomitant]
     Active Substance: DIAZEPAM
  54. LIPITOR [Concomitant]
     Active Substance: ATORVASTATIN CALCIUM

REACTIONS (19)
  - Osteoporosis [Not Recovered/Not Resolved]
  - Spinal compression fracture [Recovered/Resolved]
  - Spinal compression fracture [Recovered/Resolved]
  - Cervical vertebral fracture [Recovered/Resolved]
  - Spinal compression fracture [Not Recovered/Not Resolved]
  - Rib fracture [Recovered/Resolved]
  - Ankle fracture [Recovered/Resolved]
  - Spinal operation [Recovered/Resolved]
  - Multiple fractures [Unknown]
  - Spinal fusion surgery [Unknown]
  - Osteopenia [Not Recovered/Not Resolved]
  - Bone density decreased [Unknown]
  - Emotional distress [Unknown]
  - Anhedonia [Unknown]
  - Economic problem [Unknown]
  - Anxiety [Unknown]
  - Pain [Unknown]
  - Therapeutic product effect decreased [Unknown]
  - Back pain [Not Recovered/Not Resolved]

NARRATIVE: CASE EVENT DATE: 20081203
